FAERS Safety Report 4726930-9 (Version None)
Quarter: 2005Q3

REPORT INFORMATION
  Report Type: 
  Country: None (occurrence: None)
  Receive Date: 20050726
  Receipt Date: 20050628
  Transmission Date: 20060218
  Serious: Yes (Other)
  Sender: FDA-Public Use
  Company Number: ENTC2005-0179

PATIENT
  Age: 87 Year
  Sex: Male

DRUGS (2)
  1. STALEVO 100 [Suspect]
     Indication: PARKINSON'S DISEASE
     Dosage: 100/25/200 MG TDS
     Dates: start: 20050603, end: 20050627
  2. SINEMET [Concomitant]

REACTIONS (4)
  - ANAPHYLACTIC REACTION [None]
  - DYSPNOEA [None]
  - HYPERSENSITIVITY [None]
  - SWELLING FACE [None]
